FAERS Safety Report 9817939 (Version 13)
Quarter: 2018Q1

REPORT INFORMATION
  Report Type: Report from Study
  Country: CA (occurrence: CA)
  Receive Date: 20140115
  Receipt Date: 20180306
  Transmission Date: 20180509
  Serious: Yes (Other)
  Sender: FDA-Public Use
  Company Number: PHHY2012CA121216

PATIENT
  Age: 53 Year
  Sex: Female

DRUGS (4)
  1. TASIGNA [Suspect]
     Active Substance: NILOTINIB
     Indication: CHRONIC MYELOID LEUKAEMIA
     Dosage: 300 MG, BID
     Route: 048
     Dates: start: 20110501
  2. CRESTOR [Concomitant]
     Active Substance: ROSUVASTATIN CALCIUM
     Indication: BLOOD CHOLESTEROL INCREASED
     Dosage: UNK
     Route: 065
     Dates: start: 201109
  3. ACCOLATE [Concomitant]
     Active Substance: ZAFIRLUKAST
     Indication: PRODUCT USED FOR UNKNOWN INDICATION
     Route: 065
  4. FLOVENT [Concomitant]
     Active Substance: FLUTICASONE PROPIONATE
     Indication: PRODUCT USED FOR UNKNOWN INDICATION
     Dosage: UNK UKN, PRN
     Route: 065

REACTIONS (30)
  - Abdominal pain upper [Recovering/Resolving]
  - Mitral valve disease [Unknown]
  - Osteopenia [Unknown]
  - Vomiting [Unknown]
  - Flatulence [Recovering/Resolving]
  - Dyspepsia [Recovering/Resolving]
  - Heart valve stenosis [Unknown]
  - Eye haemorrhage [Unknown]
  - Biliary colic [Unknown]
  - Feeling abnormal [Unknown]
  - Ejection fraction decreased [Unknown]
  - Cardiac murmur [Unknown]
  - Gastritis [Unknown]
  - Electrocardiogram abnormal [Unknown]
  - Tooth fracture [Unknown]
  - Hypoaesthesia [Unknown]
  - Second primary malignancy [Unknown]
  - Intestinal polyp [Unknown]
  - Bone pain [Unknown]
  - Chills [Unknown]
  - Fatigue [Unknown]
  - Basal cell carcinoma [Unknown]
  - Malaise [Unknown]
  - Brunner^s gland hyperplasia [Unknown]
  - Hyperchlorhydria [Unknown]
  - Blood cholesterol increased [Recovering/Resolving]
  - Nausea [Unknown]
  - Rash [Unknown]
  - Photosensitivity reaction [Unknown]
  - Pain in extremity [Unknown]

NARRATIVE: CASE EVENT DATE: 20131011
